FAERS Safety Report 25137672 (Version 1)
Quarter: 2025Q1

REPORT INFORMATION
  Report Type: Other
  Country: US (occurrence: US)
  Receive Date: 20250329
  Receipt Date: 20250329
  Transmission Date: 20250408
  Serious: Yes (Death, Other)
  Sender: ANI
  Company Number: US-ANIPHARMA-022102

PATIENT
  Age: 16 Year
  Sex: Male
  Weight: 80.2 kg

DRUGS (3)
  1. FLECAINIDE ACETATE [Suspect]
     Active Substance: FLECAINIDE ACETATE
     Indication: Completed suicide
  2. CAFFEINE [Concomitant]
     Active Substance: CAFFEINE
     Indication: Product used for unknown indication
  3. NALOXONE [Concomitant]
     Active Substance: NALOXONE
     Indication: Product used for unknown indication

REACTIONS (9)
  - Completed suicide [Fatal]
  - Nausea [Fatal]
  - Vomiting [Fatal]
  - Dyspnoea [Fatal]
  - Cardiac arrest [Fatal]
  - Cardiac failure acute [Fatal]
  - Hypertrophic cardiomyopathy [Fatal]
  - Intentional overdose [Fatal]
  - Toxicity to various agents [Fatal]
